FAERS Safety Report 23091393 (Version 1)
Quarter: 2023Q4

REPORT INFORMATION
  Report Type: Report from Study
  Country: DE (occurrence: DE)
  Receive Date: 20231020
  Receipt Date: 20231020
  Transmission Date: 20240110
  Serious: Yes (Hospitalization, Other)
  Sender: FDA-Public Use
  Company Number: DE-UCBSA-2023048726

PATIENT
  Sex: Male

DRUGS (15)
  1. METHOTREXATE SODIUM [Suspect]
     Active Substance: METHOTREXATE SODIUM
     Dosage: 30 MG
  2. METHOTREXATE SODIUM [Suspect]
     Active Substance: METHOTREXATE SODIUM
     Dosage: 20 MG
  3. METHOTREXATE SODIUM [Suspect]
     Active Substance: METHOTREXATE SODIUM
     Dosage: 25 MG
  4. METHOTREXATE SODIUM [Suspect]
     Active Substance: METHOTREXATE SODIUM
     Dosage: 15 MG
  5. KINERET [Suspect]
     Active Substance: ANAKINRA
     Dosage: 100 MG
     Dates: start: 201907, end: 201911
  6. CERTOLIZUMAB PEGOL [Suspect]
     Active Substance: CERTOLIZUMAB PEGOL
     Dosage: 400 MG
     Dates: start: 201603
  7. CERTOLIZUMAB PEGOL [Suspect]
     Active Substance: CERTOLIZUMAB PEGOL
     Dosage: 200 MG
     Dates: end: 201702
  8. OLUMIANT [Suspect]
     Active Substance: BARICITINIB
     Dosage: 4 MG
     Dates: start: 201704, end: 201707
  9. OLUMIANT [Suspect]
     Active Substance: BARICITINIB
     Dosage: 4 MG
     Dates: start: 202005, end: 202206
  10. OLUMIANT [Suspect]
     Active Substance: BARICITINIB
     Dosage: 2 MG
     Dates: start: 202208, end: 202303
  11. MABTHERA [Suspect]
     Active Substance: RITUXIMAB
     Dosage: 1000 MG
     Dates: start: 201707
  12. MABTHERA [Suspect]
     Active Substance: RITUXIMAB
     Dosage: 1000 MG
     Dates: start: 201901
  13. MABTHERA [Suspect]
     Active Substance: RITUXIMAB
     Dosage: 1000 MG
     Dates: start: 201907
  14. REMICADE [Suspect]
     Active Substance: INFLIXIMAB
     Dosage: 500 MG
     Dates: start: 201912, end: 202303
  15. TOCILIZUMAB [Suspect]
     Active Substance: TOCILIZUMAB
     Dosage: 162 MG
     Dates: start: 201702, end: 201704

REACTIONS (3)
  - Testicular seminoma (pure) [Unknown]
  - COVID-19 [Unknown]
  - Fungal skin infection [Unknown]

NARRATIVE: CASE EVENT DATE: 20220627
